FAERS Safety Report 4355444-3 (Version None)
Quarter: 2004Q2

REPORT INFORMATION
  Report Type: 
  Country: None (occurrence: None)
  Receive Date: 20040504
  Receipt Date: 20040421
  Transmission Date: 20050107
  Serious: Yes (Hospitalization, Other)
  Sender: FDA-Public Use
  Company Number: 049-0981-M0100876

PATIENT
  Sex: Female

DRUGS (4)
  1. SORTIS (ATORVASTATIN) [Suspect]
     Indication: HYPERCHOLESTEROLAEMIA
     Dosage: 10 MG (DAILY), ORAL
     Route: 048
     Dates: start: 19950101
  2. CORTISONE (CORTISONE) [Concomitant]
  3. CLARITHROMYCIN [Concomitant]
  4. METRONIDAZOLE [Concomitant]

REACTIONS (13)
  - ASTHENIA [None]
  - BLOOD GLUCOSE INCREASED [None]
  - HELICOBACTER INFECTION [None]
  - HYPERSENSITIVITY [None]
  - INFLUENZA [None]
  - MUSCULAR WEAKNESS [None]
  - MUSCULOSKELETAL PAIN [None]
  - NASOPHARYNGITIS [None]
  - PANCREATITIS [None]
  - POLYMYALGIA [None]
  - SHOCK [None]
  - TEMPORAL ARTERITIS [None]
  - WEIGHT DECREASED [None]
